FAERS Safety Report 5344502-2 (Version None)
Quarter: 2007Q2

REPORT INFORMATION
  Report Type: 
  Country: None (occurrence: None)
  Receive Date: 20070604
  Receipt Date: 20070523
  Transmission Date: 20071010
  Serious: Yes (Other)
  Sender: FDA-Public Use
  Company Number: GB-PFIZER INC-2007031725

PATIENT
  Sex: Male
  Weight: 80 kg

DRUGS (2)
  1. CHAMPIX [Suspect]
     Route: 048
  2. ANTIHISTAMINES [Concomitant]

REACTIONS (11)
  - ARTHRALGIA [None]
  - BALANCE DISORDER [None]
  - CHEST PAIN [None]
  - DIPLOPIA [None]
  - DIZZINESS [None]
  - DYSPNOEA [None]
  - MALAISE [None]
  - MUSCLE SPASMS [None]
  - RASH [None]
  - SLEEP DISORDER [None]
  - TINNITUS [None]
